FAERS Safety Report 23168163 (Version 4)
Quarter: 2024Q3

REPORT INFORMATION
  Report Type: Report from Study
  Country: US (occurrence: US)
  Receive Date: 20231109
  Receipt Date: 20240802
  Transmission Date: 20241016
  Serious: Yes (Other)
  Sender: ABBVIE
  Company Number: US-ABBVIE-5489225

PATIENT
  Sex: Female

DRUGS (1)
  1. VENCLEXTA [Suspect]
     Active Substance: VENETOCLAX
     Indication: Chronic myelomonocytic leukaemia
     Dosage: TAKE 4 TABLET(S) BY MOUTH DAILY ON DAYS 1-7 EVERY 28 DAY CYCLE AS DIRECTED,?FORM STRENGTH 100 MIL...
     Route: 048

REACTIONS (3)
  - Deafness [Unknown]
  - Hypertension [Unknown]
  - Off label use [Unknown]
